FAERS Safety Report 14554660 (Version 1)
Quarter: 2018Q1

REPORT INFORMATION
  Report Type: Spontaneous
  Country: US (occurrence: US)
  Receive Date: 20180217
  Receipt Date: 20180217
  Transmission Date: 20180509
  Serious: Yes (Other)
  Sender: FDA-Public Use
  Company Number: None

PATIENT
  Age: 59 Year
  Sex: Female
  Weight: 83.46 kg

DRUGS (2)
  1. GAMUNEX-C [Suspect]
     Active Substance: HUMAN IMMUNOGLOBULIN G
     Indication: MYASTHENIA GRAVIS
     Route: 042
     Dates: start: 20171113, end: 20171117
  2. GAMUNEX-C [Suspect]
     Active Substance: HUMAN IMMUNOGLOBULIN G
     Dosage: 175 GRAMS OVER 5 DAYS EVERY 4 WEEKS IV
     Route: 042

REACTIONS (5)
  - Headache [None]
  - Photophobia [None]
  - Musculoskeletal stiffness [None]
  - Neck pain [None]
  - Nausea [None]

NARRATIVE: CASE EVENT DATE: 20171118
